FAERS Safety Report 10100877 (Version 1)
Quarter: 2014Q2

REPORT INFORMATION
  Report Type: Spontaneous
  Country: GB (occurrence: GB)
  Receive Date: 20140423
  Receipt Date: 20140423
  Transmission Date: 20141212
  Serious: Yes (Other)
  Sender: FDA-Public Use
  Company Number: GB-ALLERGAN-1407950US

PATIENT
  Sex: Female

DRUGS (1)
  1. BOTOX [Suspect]
     Indication: MIGRAINE
     Dosage: UNK, SINGLE
     Route: 030
     Dates: start: 201402, end: 201402

REACTIONS (11)
  - Hypotonia [Unknown]
  - Frequent bowel movements [Unknown]
  - Bedridden [Unknown]
  - Skin discolouration [Unknown]
  - Facial pain [Unknown]
  - Torticollis [Unknown]
  - Tremor [Unknown]
  - Visual acuity reduced transiently [Unknown]
  - Headache [Unknown]
  - Drug hypersensitivity [Unknown]
  - Asthenia [Unknown]
